FAERS Safety Report 8268930-0 (Version None)
Quarter: 2012Q2

REPORT INFORMATION
  Report Type: 
  Country: None (occurrence: None)
  Receive Date: 20120409
  Receipt Date: 20120402
  Transmission Date: 20120825
  Serious: Yes (Other)
  Sender: FDA-Public Use
  Company Number: US-US-EMD SERONO, INC.-7115862

PATIENT
  Sex: Female
  Weight: 82 kg

DRUGS (1)
  1. REBIF [Suspect]
     Indication: PRODUCT USED FOR UNKNOWN INDICATION
     Route: 058
     Dates: start: 20111220

REACTIONS (5)
  - BLADDER DYSFUNCTION [None]
  - SURGERY [None]
  - ABASIA [None]
  - INFLUENZA LIKE ILLNESS [None]
  - BACK PAIN [None]
